FAERS Safety Report 23592485 (Version 1)
Quarter: 2024Q1

REPORT INFORMATION
  Report Type: Report from Study
  Country: GB (occurrence: GB)
  Receive Date: 20240304
  Receipt Date: 20240304
  Transmission Date: 20240410
  Serious: Yes (Other)
  Sender: FDA-Public Use
  Company Number: GB-UCBSA-2024009248

PATIENT
  Age: 43 Year
  Sex: Female

DRUGS (1)
  1. CERTOLIZUMAB PEGOL [Suspect]
     Active Substance: CERTOLIZUMAB PEGOL
     Indication: Ankylosing spondylitis
     Dosage: 200 MILLIGRAM, EV 2 WEEKS(QOW)
     Route: 058

REACTIONS (13)
  - Loss of consciousness [Unknown]
  - Oropharyngeal pain [Unknown]
  - Feeding disorder [Unknown]
  - Dysphagia [Unknown]
  - Aphasia [Unknown]
  - Aphonia [Unknown]
  - Headache [Unknown]
  - Tremor [Unknown]
  - Chills [Unknown]
  - Feeling of body temperature change [Unknown]
  - Facial pain [Unknown]
  - Skin discolouration [Unknown]
  - Contusion [Unknown]

NARRATIVE: CASE EVENT DATE: 20240113
